FAERS Safety Report 19903166 (Version 1)
Quarter: 2021Q4

REPORT INFORMATION
  Report Type: Spontaneous
  Country: US (occurrence: US)
  Receive Date: 20211001
  Receipt Date: 20211001
  Transmission Date: 20220303
  Serious: No
  Sender: FDA-Public Use
  Company Number: US-ELI_LILLY_AND_COMPANY-US202109001979

PATIENT
  Age: 59 Year
  Sex: Male

DRUGS (4)
  1. HUMALOG [Suspect]
     Active Substance: INSULIN LISPRO
     Indication: Diabetes mellitus
     Dosage: 30 U, TID
     Route: 058
     Dates: start: 202108
  2. HUMALOG [Suspect]
     Active Substance: INSULIN LISPRO
     Indication: Diabetes mellitus
     Dosage: 30 U, TID
     Route: 058
     Dates: start: 202108
  3. HUMALOG [Suspect]
     Active Substance: INSULIN LISPRO
     Dosage: 40 U, OTHER (3 OR 4 TIMES PER DAY)
     Route: 058
  4. HUMALOG [Suspect]
     Active Substance: INSULIN LISPRO
     Dosage: 40 U, OTHER (3 OR 4 TIMES PER DAY)
     Route: 058

REACTIONS (4)
  - Diabetic foot [Unknown]
  - COVID-19 [Unknown]
  - Blood glucose increased [Unknown]
  - Therapeutic response delayed [Unknown]

NARRATIVE: CASE EVENT DATE: 20210831
